FAERS Safety Report 9780069 (Version 3)
Quarter: 2014Q1

REPORT INFORMATION
  Report Type: Spontaneous
  Country: US (occurrence: US)
  Receive Date: 20131223
  Receipt Date: 20140130
  Transmission Date: 20141002
  Serious: Yes (Death, Hospitalization, Other)
  Sender: FDA-Public Use
  Company Number: US-BAXTER-2013BAX051400

PATIENT
  Sex: Male

DRUGS (5)
  1. DIANEAL LOW CALCIUM [Suspect]
     Indication: PERITONEAL DIALYSIS
     Dosage: 2 BAGS
     Route: 033
     Dates: start: 20110808, end: 20140115
  2. DIANEAL LOW CALCIUM [Suspect]
     Dosage: 1 BAG
     Route: 033
  3. DIANEAL LOW CALCIUM [Suspect]
     Indication: PERITONEAL DIALYSIS
     Dosage: 1 BAG
     Route: 033
     Dates: start: 2011, end: 20140115
  4. DIANEAL LOW CALCIUM [Suspect]
     Dosage: 2 BAGS
     Route: 033
  5. COUMADIN [Suspect]
     Indication: THROMBOSIS
     Route: 065
     Dates: start: 20130620

REACTIONS (9)
  - Cerebral haemorrhage [Fatal]
  - Cerebrovascular accident [Recovering/Resolving]
  - Brain stem haemorrhage [Recovered/Resolved]
  - Hemiplegia [Not Recovered/Not Resolved]
  - Swelling [Recovering/Resolving]
  - Pneumonia [Unknown]
  - Pneumothorax [Unknown]
  - Fluid retention [Recovering/Resolving]
  - Pyrexia [Unknown]
